FAERS Safety Report 20541017 (Version 1)
Quarter: 2022Q1

REPORT INFORMATION
  Report Type: Spontaneous
  Country: US (occurrence: None)
  Receive Date: 20220302
  Receipt Date: 20220302
  Transmission Date: 20220423
  Serious: Yes (Disabling)
  Sender: FDA-Public Use
  Company Number: None

PATIENT
  Age: 71 Year
  Sex: Female
  Weight: 55.34 kg

DRUGS (1)
  1. TEPEZZA [Suspect]
     Active Substance: TEPROTUMUMAB-TRBW
     Indication: Endocrine ophthalmopathy
     Dosage: OTHER FREQUENCY : 1 EVERY 3 WEEKS;?
     Route: 042
     Dates: start: 20210624, end: 20210715

REACTIONS (7)
  - Deafness bilateral [None]
  - Ear discomfort [None]
  - Hypoacusis [None]
  - Tinnitus [None]
  - Ear pain [None]
  - Muscle spasms [None]
  - Tinnitus [None]

NARRATIVE: CASE EVENT DATE: 20210715
